FAERS Safety Report 22181360 (Version 1)
Quarter: 2023Q2

REPORT INFORMATION
  Report Type: Spontaneous
  Country: US (occurrence: US)
  Receive Date: 20230406
  Receipt Date: 20230406
  Transmission Date: 20230722
  Serious: Yes (Life-Threatening, Hospitalization)
  Sender: FDA-Public Use
  Company Number: US-SERVIER-S23003450

PATIENT

DRUGS (1)
  1. ASPARLAS [Suspect]
     Active Substance: CALASPARGASE PEGOL-MKNL
     Indication: B precursor type acute leukaemia
     Dosage: 4200 [U], ONE DOSE
     Route: 042
     Dates: start: 20221215, end: 20221215

REACTIONS (10)
  - Pancreatitis [Recovered/Resolved]
  - Hyperglycaemia [Recovered/Resolved]
  - Hypertriglyceridaemia [Recovered/Resolved]
  - Lactic acidosis [Recovered/Resolved]
  - Acute kidney injury [Recovered/Resolved]
  - Hyperammonaemia [Recovered/Resolved]
  - Pancreatic pseudocyst [Recovering/Resolving]
  - Pancreatic pseudoaneurysm [Unknown]
  - Gastrointestinal haemorrhage [Recovered/Resolved]
  - Pyrexia [Unknown]

NARRATIVE: CASE EVENT DATE: 20221201
